FAERS Safety Report 10334233 (Version 2)
Quarter: 2014Q3

REPORT INFORMATION
  Report Type: Other
  Country: US (occurrence: US)
  Receive Date: 20140723
  Receipt Date: 20140723
  Transmission Date: 20150326
  Serious: Yes (Other)
  Sender: FDA-Public Use
  Company Number: US-LUPIN PHARMACEUTICALS INC.-E2B_00001885

PATIENT
  Age: 34 Year
  Sex: Female
  Weight: 60.38 kg

DRUGS (5)
  1. LISINOPRIL TABLETS USP 5 MG [Suspect]
     Active Substance: LISINOPRIL
     Dates: start: 20140305
  2. LISINOPRIL TABLETS USP 5 MG [Suspect]
     Active Substance: LISINOPRIL
     Dates: start: 20140220, end: 20140222
  3. VIMPAT [Concomitant]
     Active Substance: LACOSAMIDE
     Indication: CONVULSION
     Route: 065
  4. LISINOPRIL TABLETS USP 5 MG [Suspect]
     Active Substance: LISINOPRIL
     Indication: HYPERTENSION
  5. LISINOPRIL TABLETS USP 5 MG [Suspect]
     Active Substance: LISINOPRIL

REACTIONS (4)
  - Hypertension [Unknown]
  - Palpitations [Not Recovered/Not Resolved]
  - Feeling abnormal [Not Recovered/Not Resolved]
  - Drug ineffective [Unknown]

NARRATIVE: CASE EVENT DATE: 20140221
